FAERS Safety Report 7806814-X (Version None)
Quarter: 2011Q4

REPORT INFORMATION
  Report Type: 
  Country: None (occurrence: None)
  Receive Date: 20111011
  Receipt Date: 20111005
  Transmission Date: 20120403
  Serious: Yes (Death, Other)
  Sender: FDA-Public Use
  Company Number: US-PFIZER INC-2011146396

PATIENT
  Sex: Male

DRUGS (1)
  1. CHANTIX [Suspect]
     Indication: SMOKING CESSATION THERAPY
     Dosage: STARTER PACK, CONTINUATION PACK
     Dates: start: 20080201, end: 20080501

REACTIONS (9)
  - INSOMNIA [None]
  - DEPRESSION [None]
  - ABNORMAL DREAMS [None]
  - ABNORMAL BEHAVIOUR [None]
  - AGGRESSION [None]
  - COMPLETED SUICIDE [None]
  - MOOD ALTERED [None]
  - GUN SHOT WOUND [None]
  - AGITATION [None]
